FAERS Safety Report 20794111 (Version 5)
Quarter: 2022Q4

REPORT INFORMATION
  Report Type: Spontaneous
  Country: JP (occurrence: JP)
  Receive Date: 20220506
  Receipt Date: 20221216
  Transmission Date: 20230112
  Serious: Yes (Hospitalization, Other)
  Sender: FDA-Public Use
  Company Number: JP-MSD-M2022-12267

PATIENT
  Age: 48 Year
  Sex: Female
  Weight: 59 kg

DRUGS (6)
  1. KEYTRUDA [Suspect]
     Active Substance: PEMBROLIZUMAB
     Indication: Triple negative breast cancer
     Dosage: 200 MILLIGRAM, Q3W
     Route: 041
     Dates: start: 20220225, end: 20220506
  2. CARBOPLATIN [Suspect]
     Active Substance: CARBOPLATIN
     Indication: Triple negative breast cancer
     Dosage: AUC2, 2 TIMES/3 WEEKS
     Route: 041
     Dates: start: 20220225, end: 20220408
  3. GEMCITABINE HYDROCHLORIDE [Suspect]
     Active Substance: GEMCITABINE HYDROCHLORIDE
     Indication: Triple negative breast cancer
     Dosage: 1000 MILLIGRAM/SQ. METER, 2 TIMES/3 WEEKS
     Route: 041
     Dates: start: 20220225, end: 20220408
  4. HYDROMORPHONE HYDROCHLORIDE [Concomitant]
     Active Substance: HYDROMORPHONE HYDROCHLORIDE
     Indication: Analgesic therapy
     Dosage: 2 MG - INCREASED
     Route: 048
     Dates: start: 20220118, end: 20220902
  5. HYDROMORPHONE HYDROCHLORIDE [Concomitant]
     Active Substance: HYDROMORPHONE HYDROCHLORIDE
     Indication: Analgesic therapy
     Dosage: 1 MG - INCREASE
     Route: 048
     Dates: start: 20220118, end: 20220902
  6. SYMPROIC [Concomitant]
     Active Substance: NALDEMEDINE
     Indication: Constipation
     Dosage: 0.2 MILLIGRAM/DAY
     Route: 048
     Dates: start: 20220118, end: 20220902

REACTIONS (6)
  - Haemophagocytic lymphohistiocytosis [Recovering/Resolving]
  - Hepatitis acute [Recovered/Resolved]
  - Malignant neoplasm progression [Not Recovered/Not Resolved]
  - Sepsis [Recovered/Resolved]
  - Blood glucose increased [Unknown]
  - Constipation [Unknown]

NARRATIVE: CASE EVENT DATE: 20220101
